FAERS Safety Report 7197364-5 (Version None)
Quarter: 2010Q4

REPORT INFORMATION
  Report Type: 
  Country: None (occurrence: None)
  Receive Date: 20101227
  Receipt Date: 20101215
  Transmission Date: 20110411
  Serious: Yes (Other)
  Sender: FDA-Public Use
  Company Number: GB-ASTRAZENECA-2009SE27192

PATIENT
  Age: 81 Year
  Sex: Male

DRUGS (5)
  1. RAMIPRIL [Suspect]
     Route: 048
  2. PARACETAMOL [Suspect]
     Route: 048
  3. AMLODIPINE BESYLATE [Suspect]
     Route: 048
  4. ALFACALCIDOL [Suspect]
     Route: 048
  5. NITROFURANTOIN MACROCRYSTALLINE [Suspect]
     Indication: INFECTION PROPHYLAXIS
     Route: 048
     Dates: start: 20060101, end: 20060901

REACTIONS (4)
  - CATARACT [None]
  - INTRACRANIAL PRESSURE INCREASED [None]
  - OPTIC DISC DISORDER [None]
  - VISUAL ACUITY REDUCED [None]
